FAERS Safety Report 16200914 (Version 1)
Quarter: 2019Q2

REPORT INFORMATION
  Report Type: Spontaneous
  Country: US (occurrence: US)
  Receive Date: 20190311
  Receipt Date: 20190311
  Transmission Date: 20190711
  Serious: Yes (Other)
  Sender: FDA-Public Use
  Company Number: None

PATIENT
  Age: 70 Year
  Sex: Female
  Weight: 82.55 kg

DRUGS (22)
  1. XOLTAREN [Concomitant]
  2. PROTONIX [Concomitant]
     Active Substance: PANTOPRAZOLE SODIUM
  3. OMEGA 3 FATTY ACIDS [Concomitant]
     Active Substance: OMEGA-3 FATTY ACIDS
  4. GLIPIZIDE. [Concomitant]
     Active Substance: GLIPIZIDE
  5. ARIPIPRAZOLE. [Concomitant]
     Active Substance: ARIPIPRAZOLE
  6. GABAPENTIN. [Concomitant]
     Active Substance: GABAPENTIN
  7. ATORVASTATIN [Concomitant]
     Active Substance: ATORVASTATIN
  8. KLOR [Concomitant]
  9. TRADONE [Concomitant]
  10. ZOFRAN [Concomitant]
     Active Substance: ONDANSETRON HYDROCHLORIDE
  11. METFORMIN [Concomitant]
     Active Substance: METFORMIN HYDROCHLORIDE
  12. METOPROLOL. [Concomitant]
     Active Substance: METOPROLOL
  13. PANTOPRAZOLE [Concomitant]
     Active Substance: PANTOPRAZOLE
  14. ACTEMRA [Concomitant]
     Active Substance: TOCILIZUMAB
  15. LATUS SOLO STAR [Concomitant]
  16. HYDROCODONE [Concomitant]
     Active Substance: HYDROCODONE
  17. QUETIAPINE. [Concomitant]
     Active Substance: QUETIAPINE
  18. ONDANSE [Concomitant]
  19. OMEPARZOLE [Concomitant]
  20. LEFLUNOMIDE 20MG TABLETS [Suspect]
     Active Substance: LEFLUNOMIDE
     Indication: RHEUMATOID ARTHRITIS
     Route: 048
     Dates: end: 20181102
  21. FUROSEMIDE. [Concomitant]
     Active Substance: FUROSEMIDE
  22. NATEGLINIDE. [Concomitant]
     Active Substance: NATEGLINIDE

REACTIONS (1)
  - Alopecia [None]

NARRATIVE: CASE EVENT DATE: 20181102
